FAERS Safety Report 8190751-8 (Version None)
Quarter: 2012Q1

REPORT INFORMATION
  Report Type: 
  Country: None (occurrence: None)
  Receive Date: 20120307
  Receipt Date: 20120229
  Transmission Date: 20120608
  Serious: Yes (Death, Other)
  Sender: FDA-Public Use
  Company Number: DE-AMGEN-DEUSP2011066766

PATIENT

DRUGS (6)
  1. DOXORUBICIN HCL [Suspect]
     Indication: POST TRANSPLANT LYMPHOPROLIFERATIVE DISORDER
  2. NEUPOGEN [Suspect]
     Indication: POST TRANSPLANT LYMPHOPROLIFERATIVE DISORDER
     Dosage: UNK
     Route: 058
  3. CYCLOPHOSPHAMIDE [Suspect]
     Indication: POST TRANSPLANT LYMPHOPROLIFERATIVE DISORDER
     Route: 042
  4. RITUXIMAB [Suspect]
     Indication: POST TRANSPLANT LYMPHOPROLIFERATIVE DISORDER
     Dosage: 750 MG/M2, QWK
     Route: 042
  5. VINCRISTINE [Suspect]
     Indication: POST TRANSPLANT LYMPHOPROLIFERATIVE DISORDER
     Route: 042
  6. PREDNISONE TAB [Suspect]
     Indication: POST TRANSPLANT LYMPHOPROLIFERATIVE DISORDER
     Route: 048

REACTIONS (9)
  - HEPATITIS FULMINANT [None]
  - POST TRANSPLANT LYMPHOPROLIFERATIVE DISORDER [None]
  - INFECTION [None]
  - CYTOMEGALOVIRUS COLITIS [None]
  - HAEMORRHAGE [None]
  - SEPSIS [None]
  - INAPPROPRIATE ANTIDIURETIC HORMONE SECRETION [None]
  - LEUKOPENIA [None]
  - PNEUMOCYSTIS JIROVECI PNEUMONIA [None]
